FAERS Safety Report 18105681 (Version 1)
Quarter: 2020Q3

REPORT INFORMATION
  Report Type: Spontaneous
  Country: GB (occurrence: GB)
  Receive Date: 20200804
  Receipt Date: 20200804
  Transmission Date: 20201103
  Serious: Yes (Other)
  Sender: FDA-Public Use
  Company Number: GB-ACCORD-193980

PATIENT
  Age: 67 Year
  Sex: Male
  Weight: 84.36 kg

DRUGS (8)
  1. ROSUVASTATIN. [Suspect]
     Active Substance: ROSUVASTATIN
     Indication: BLOOD CHOLESTEROL INCREASED
     Dosage: INITIALLY 1 PER WEEK
     Route: 048
     Dates: start: 20200601, end: 20200704
  2. BISOPROLOL [Concomitant]
     Active Substance: BISOPROLOL
  3. LEVOTHYROXINE. [Concomitant]
     Active Substance: LEVOTHYROXINE
  4. EZETIMIBE. [Concomitant]
     Active Substance: EZETIMIBE
  5. LATANOPROST. [Concomitant]
     Active Substance: LATANOPROST
  6. ACETYLSALICYLIC ACID [Concomitant]
     Active Substance: ASPIRIN
  7. LANSOPRAZOLE. [Concomitant]
     Active Substance: LANSOPRAZOLE
  8. RAMIPRIL. [Concomitant]
     Active Substance: RAMIPRIL

REACTIONS (5)
  - Myalgia [Not Recovered/Not Resolved]
  - Aggression [Recovered/Resolved]
  - Fatigue [Recovered/Resolved with Sequelae]
  - Sleep disorder [Unknown]
  - Depression [Unknown]

NARRATIVE: CASE EVENT DATE: 20200601
